FAERS Safety Report 14609540 (Version 1)
Quarter: 2018Q1

REPORT INFORMATION
  Report Type: Spontaneous
  Country: US (occurrence: US)
  Receive Date: 20180307
  Receipt Date: 20180307
  Transmission Date: 20180509
  Serious: Yes (Other)
  Sender: FDA-Public Use
  Company Number: US-ALLERGAN-1718782US

PATIENT
  Age: 6 Decade
  Sex: Female

DRUGS (1)
  1. VIIBRYD [Suspect]
     Active Substance: VILAZODONE HYDROCHLORIDE
     Indication: MAJOR DEPRESSION
     Dosage: UNK
     Route: 048

REACTIONS (3)
  - Incorrect dose administered [Unknown]
  - Irritability [Not Recovered/Not Resolved]
  - Suicidal behaviour [Not Recovered/Not Resolved]
